FAERS Safety Report 4521023-8 (Version None)
Quarter: 2004Q4

REPORT INFORMATION
  Report Type: 
  Country: None (occurrence: None)
  Receive Date: 20041208
  Receipt Date: 20041201
  Transmission Date: 20050328
  Serious: Yes (Other)
  Sender: FDA-Public Use
  Company Number: 200413566EU

PATIENT
  Sex: Male
  Weight: 84 kg

DRUGS (1)
  1. AMARYL [Suspect]
     Indication: DIABETES MELLITUS
     Route: 048
     Dates: start: 20041110, end: 20041113

REACTIONS (2)
  - ANGINA PECTORIS [None]
  - PALPITATIONS [None]
